FAERS Safety Report 10507009 (Version 1)
Quarter: 2014Q3

REPORT INFORMATION
  Report Type: Spontaneous
  Country: US (occurrence: None)
  Receive Date: 20140915
  Receipt Date: 20140915
  Transmission Date: 20150326
  Serious: Yes (Other)
  Sender: FDA-Public Use
  Company Number: 2014-US-005907

PATIENT
  Age: 66 Year
  Sex: Male
  Weight: 81.6 kg

DRUGS (7)
  1. XYREM [Suspect]
     Active Substance: SODIUM OXYBATE
     Indication: NARCOLEPSY
     Route: 048
     Dates: start: 20140507, end: 2014
  2. METHYLPHENIDATE (METHYLPHENIDATE HYDROCHLORIDE) [Concomitant]
  3. ATENOLOL. [Concomitant]
     Active Substance: ATENOLOL
  4. XYREM [Suspect]
     Active Substance: SODIUM OXYBATE
     Indication: SOMNOLENCE
     Route: 048
     Dates: start: 20140507, end: 2014
  5. LISINOPRIL. [Concomitant]
     Active Substance: LISINOPRIL
  6. VIAGRA [Concomitant]
     Active Substance: SILDENAFIL CITRATE
  7. NAICIN (NICONTIC ACID) [Concomitant]

REACTIONS (2)
  - Blood pressure increased [None]
  - Condition aggravated [None]

NARRATIVE: CASE EVENT DATE: 20140509
